FAERS Safety Report 5520679-0 (Version None)
Quarter: 2007Q4

REPORT INFORMATION
  Report Type: 
  Country: None (occurrence: None)
  Receive Date: 20071115
  Receipt Date: 20071115
  Transmission Date: 20080405
  Serious: Yes (Hospitalization)
  Sender: FDA-Public Use
  Company Number: None

PATIENT
  Sex: Male
  Weight: 139 kg

DRUGS (17)
  1. BEVACIZUMAB(GENENTECH) [Suspect]
     Indication: GLIOBLASTOMA MULTIFORME
     Dosage: 1175MG QOW IV
     Route: 042
     Dates: start: 20070118
  2. BEVACIZUMAB(GENENTECH) [Suspect]
     Indication: GLIOBLASTOMA MULTIFORME
     Dosage: 1175MG QOW IV
     Route: 042
     Dates: start: 20070201
  3. BEVACIZUMAB(GENENTECH) [Suspect]
     Indication: GLIOBLASTOMA MULTIFORME
     Dosage: 1175MG QOW IV
     Route: 042
     Dates: start: 20070215
  4. IRINOTECAN HCL [Suspect]
     Dosage: 294MG QOW IV
     Route: 042
     Dates: start: 20070118
  5. IRINOTECAN HCL [Suspect]
     Dosage: 294MG QOW IV
     Route: 042
     Dates: start: 20070201
  6. IRINOTECAN HCL [Suspect]
     Dosage: 294MG QOW IV
     Route: 042
     Dates: start: 20070215
  7. ATENOLOL [Concomitant]
  8. LEXAPRO [Concomitant]
  9. DECADRON [Concomitant]
  10. KEPPRA [Concomitant]
  11. MECLIZINE [Concomitant]
  12. REGLAN [Concomitant]
  13. METHADONE [Concomitant]
  14. OXYIR [Concomitant]
  15. PHENERGAN HCL [Concomitant]
  16. ATIVAN [Concomitant]
  17. MULTI-VITAMIN [Concomitant]

REACTIONS (1)
  - PULMONARY EMBOLISM [None]
